FAERS Safety Report 4683263-7 (Version None)
Quarter: 2005Q2

REPORT INFORMATION
  Report Type: 
  Country: None (occurrence: None)
  Receive Date: 20050602
  Receipt Date: 20050314
  Transmission Date: 20051028
  Serious: Yes (Other)
  Sender: FDA-Public Use
  Company Number: USA050393135

PATIENT
  Age: 49 Year
  Sex: Female

DRUGS (2)
  1. CYMBALTA [Suspect]
     Indication: DEPRESSION
     Dosage: 60 MG DAY
     Dates: start: 20040911
  2. PROZAC [Suspect]
     Indication: DEPRESSION
     Dosage: 80 MG DAY

REACTIONS (5)
  - CRYING [None]
  - DRUG INEFFECTIVE [None]
  - DYSPHONIA [None]
  - MENTAL IMPAIRMENT [None]
  - SUICIDAL IDEATION [None]
